FAERS Safety Report 23428868 (Version 1)
Quarter: 2024Q1

REPORT INFORMATION
  Report Type: Spontaneous
  Country: CN (occurrence: CN)
  Receive Date: 20240122
  Receipt Date: 20240122
  Transmission Date: 20240410
  Serious: Yes (Hospitalization)
  Sender: FDA-Public Use
  Company Number: CN-PFIZER INC-PV202400007232

PATIENT
  Age: 44 Year
  Sex: Female
  Weight: 55 kg

DRUGS (3)
  1. CYTARABINE [Suspect]
     Active Substance: CYTARABINE
     Indication: Breast cancer
     Dosage: 50 MG, 1X/DAY
     Route: 037
     Dates: start: 20240104, end: 20240104
  2. METHOTREXATE SODIUM [Suspect]
     Active Substance: METHOTREXATE SODIUM
     Indication: Breast cancer
     Dosage: 10 MG, 1X/DAY
     Route: 037
     Dates: start: 20240104, end: 20240104
  3. SODIUM CHLORIDE [Concomitant]
     Active Substance: SODIUM CHLORIDE
     Indication: Vehicle solution use
     Dosage: 2.5 ML, 1X/DAY
     Route: 037
     Dates: start: 20240104, end: 20240104

REACTIONS (1)
  - Agranulocytosis [Recovering/Resolving]

NARRATIVE: CASE EVENT DATE: 20240115
